FAERS Safety Report 6469838-3 (Version None)
Quarter: 2009Q4

REPORT INFORMATION
  Report Type: 
  Country: None (occurrence: None)
  Receive Date: 20091203
  Receipt Date: 20080827
  Transmission Date: 20100525
  Serious: Yes (Hospitalization)
  Sender: FDA-Public Use
  Company Number: JP-ELI_LILLY_AND_COMPANY-JP200712000439

PATIENT
  Sex: Male
  Weight: 82.6 kg

DRUGS (22)
  1. ENZASTAURIN (LY317615) [Suspect]
     Indication: NON-SMALL CELL LUNG CANCER
     Dosage: 1125 MG, OTHER
     Route: 048
     Dates: start: 20071121, end: 20071121
  2. ENZASTAURIN (LY317615) [Suspect]
     Dosage: 500 MG, DAILY (1/D)
     Route: 048
     Dates: start: 20071122, end: 20071203
  3. ENZASTAURIN (LY317615) [Suspect]
     Dosage: 500 MG, DAILY (1/D)
     Route: 048
     Dates: start: 20071211
  4. PEMETREXED [Suspect]
     Indication: NON-SMALL CELL LUNG CANCER
     Dosage: 500 MG/M2, OTHER
     Route: 042
     Dates: start: 20071128
  5. HYDROXOCOBALAMIN ACETATE [Concomitant]
     Dosage: 1000 UG, OTHER
     Route: 030
     Dates: start: 20071121
  6. VITAMINS [Concomitant]
     Dosage: 500 MG, DAILY (1/D)
     Route: 048
     Dates: start: 20071121
  7. PROHEPARUM [Concomitant]
     Indication: HEPATIC FUNCTION ABNORMAL
     Dosage: 100 MG, UNKNOWN
     Route: 048
     Dates: start: 20071203
  8. STRONGER NEO MINOPHAGEN C [Concomitant]
     Indication: HEPATIC FUNCTION ABNORMAL
     Dosage: 40 ML, UNKNOWN
     Route: 042
     Dates: start: 20071203
  9. AMLODIPINE [Concomitant]
     Indication: HYPERTENSION
     Dosage: UNK, UNK
     Route: 048
  10. LIPITOR [Concomitant]
     Indication: HYPERLIPIDAEMIA
     Dosage: 10 MG, UNK
     Route: 048
  11. CLARITIN [Concomitant]
     Indication: RASH
     Dosage: 10 MG, AS NEEDED
     Route: 048
  12. MYSER [Concomitant]
     Indication: SKIN EXFOLIATION
     Dosage: UNK, UNK
     Dates: start: 20070219
  13. KERATINAMIN [Concomitant]
  14. URSO 250 [Concomitant]
     Dates: start: 20071203
  15. KINDAVATE [Concomitant]
     Indication: RASH
     Dosage: UNK, AS NEEDED
     Route: 062
  16. DERMOVATE [Concomitant]
     Indication: RASH
     Dosage: UNK, AS NEEDED
     Route: 062
  17. VOLTAREN [Concomitant]
     Indication: PYREXIA
     Dosage: 25 MG, AS NEEDED
     Route: 054
     Dates: start: 20071202, end: 20071205
  18. CALONAL [Concomitant]
     Indication: PYREXIA
     Dosage: UNK, AS NEEDED
     Route: 048
     Dates: start: 20071202, end: 20071204
  19. DRENISON [Concomitant]
     Indication: SKIN FISSURES
     Dosage: UNK, AS NEEDED
     Route: 062
  20. DALACIN T [Concomitant]
     Indication: SKIN FISSURES
     Dates: end: 20071203
  21. FLUNASE [Concomitant]
     Indication: RHINITIS PERENNIAL
  22. KERATINAMIN [Concomitant]
     Indication: SKIN FISSURES
     Dosage: UNK, AS NEEDED
     Route: 062

REACTIONS (2)
  - ALANINE AMINOTRANSFERASE INCREASED [None]
  - ASPARTATE AMINOTRANSFERASE INCREASED [None]
